FAERS Safety Report 5800249-7 (Version None)
Quarter: 2008Q3

REPORT INFORMATION
  Report Type: 
  Country: None (occurrence: None)
  Receive Date: 20080703
  Receipt Date: 20080620
  Transmission Date: 20090109
  Serious: Yes (Other)
  Sender: FDA-Public Use
  Company Number: PHNU2008DE01954

PATIENT
  Sex: Female
  Weight: 60 kg

DRUGS (10)
  1. RASILEZ [Suspect]
     Indication: HYPERTENSION
     Dosage: 150 MG 1 DF, QD
     Route: 048
     Dates: start: 20070901, end: 20071001
  2. RAMIPRIL [Concomitant]
     Indication: HYPERTENSION
     Dosage: 5 MG/D
  3. PROGRAF [Concomitant]
     Indication: RENAL TRANSPLANT
     Dosage: 3 MG BID
  4. FUROSEMIDE [Concomitant]
     Indication: HYPERTENSION
     Dosage: 40 MG/D
  5. HYDROCHLOROTHIAZIDE [Concomitant]
     Indication: HYPERTENSION
     Dosage: 25 MG/D
  6. FLUVASTATIN [Concomitant]
     Dosage: UNK
  7. MYCOPHENOLIC ACID [Concomitant]
  8. METOPROLOL SUCCINATE [Concomitant]
  9. CLONIDINE [Concomitant]
  10. AMLODIPINE [Concomitant]

REACTIONS (2)
  - BLOOD CREATININE INCREASED [None]
  - RENAL FAILURE CHRONIC [None]
